FAERS Safety Report 24399962 (Version 1)
Quarter: 2024Q4

REPORT INFORMATION
  Report Type: Spontaneous
  Country: US (occurrence: US)
  Receive Date: 20241005
  Receipt Date: 20241005
  Transmission Date: 20250114
  Serious: No
  Sender: UNITED THERAPEUTICS
  Company Number: US-UNITED THERAPEUTICS-UNT-2024-030238

PATIENT
  Sex: Female

DRUGS (2)
  1. REMODULIN [Suspect]
     Active Substance: TREPROSTINIL
     Indication: Pulmonary arterial hypertension
     Dosage: 0.0149 ?G/KG, CONTINUING
  2. REMODULIN [Suspect]
     Active Substance: TREPROSTINIL
     Dosage: UNK, CONTINUING

REACTIONS (5)
  - Infusion site pain [Unknown]
  - Myalgia [Unknown]
  - Influenza like illness [Unknown]
  - Catheter site haemorrhage [Not Recovered/Not Resolved]
  - Catheter site irritation [Not Recovered/Not Resolved]

NARRATIVE: CASE EVENT DATE: 20240101
